FAERS Safety Report 8255693-8 (Version None)
Quarter: 2012Q2

REPORT INFORMATION
  Report Type: 
  Country: None (occurrence: None)
  Receive Date: 20120403
  Receipt Date: 20120403
  Transmission Date: 20120825
  Serious: Yes (Life-Threatening, Hospitalization, Disabling)
  Sender: FDA-Public Use
  Company Number: None

PATIENT
  Sex: Female

DRUGS (1)
  1. OFATUMUMAB [Suspect]

REACTIONS (4)
  - BLOOD PRESSURE IMMEASURABLE [None]
  - OXYGEN SATURATION DECREASED [None]
  - DYSPNOEA [None]
  - UNRESPONSIVE TO STIMULI [None]
